FAERS Safety Report 24875588 (Version 5)
Quarter: 2025Q2

REPORT INFORMATION
  Report Type: Spontaneous
  Country: US (occurrence: US)
  Receive Date: 20250122
  Receipt Date: 20250422
  Transmission Date: 20250716
  Serious: Yes (Life-Threatening)
  Sender: PFIZER
  Company Number: US-PFIZER INC-PV202200120444

PATIENT
  Age: 68 Year
  Sex: Male
  Weight: 127.01 kg

DRUGS (7)
  1. TIKOSYN [Suspect]
     Active Substance: DOFETILIDE
     Indication: Atrial fibrillation
     Dates: start: 2020
  2. TIKOSYN [Suspect]
     Active Substance: DOFETILIDE
     Dosage: 250 UG, 2X/DAY (250 MCG 1 CAP PO EVERY 12 HOURS)
     Route: 048
  3. TIKOSYN [Suspect]
     Active Substance: DOFETILIDE
     Dosage: 250 UG, 2X/DAY (125 MCG 2 CAP PO EVERY 12 HOUR INTERVAL)
     Route: 048
  4. TIKOSYN [Suspect]
     Active Substance: DOFETILIDE
     Dosage: 125 UG, 2X/DAY (125MCG CAPSULES AND TAKES TWO OF THOSE TWICE A DAY)
     Route: 048
  5. COUMADIN [Suspect]
     Active Substance: WARFARIN SODIUM
     Indication: Atrial fibrillation
  6. COUMADIN [Suspect]
     Active Substance: WARFARIN SODIUM
     Dates: start: 202501
  7. COUMADIN [Suspect]
     Active Substance: WARFARIN SODIUM
     Dates: start: 202501

REACTIONS (2)
  - Pancreatic carcinoma stage IV [Unknown]
  - Epistaxis [Recovered/Resolved]

NARRATIVE: CASE EVENT DATE: 20240501
